FAERS Safety Report 18495243 (Version 1)
Quarter: 2020Q4

REPORT INFORMATION
  Report Type: Spontaneous
  Country: IT (occurrence: IT)
  Receive Date: 20201112
  Receipt Date: 20201112
  Transmission Date: 20210114
  Serious: Yes (Hospitalization, Other)
  Sender: FDA-Public Use
  Company Number: IT-LUPIN PHARMACEUTICALS INC.-2020-08565

PATIENT
  Age: 70 Year
  Sex: Male

DRUGS (2)
  1. HYDROXYCHLOROQUINE [Suspect]
     Active Substance: HYDROXYCHLOROQUINE
     Indication: COVID-19
     Dosage: 400 MILLIGRAM, QD
     Route: 065
  2. METHYLPREDNISOLONE. [Suspect]
     Active Substance: METHYLPREDNISOLONE
     Indication: COVID-19
     Dosage: 40 MILLIGRAM, QD
     Route: 065

REACTIONS (9)
  - Cerebral haemorrhage [Unknown]
  - Cerebral artery embolism [Unknown]
  - Off label use [Unknown]
  - Staphylococcal infection [Unknown]
  - Condition aggravated [Unknown]
  - Cerebral ischaemia [Unknown]
  - Thrombocytopenia [Unknown]
  - Leukocytosis [Unknown]
  - Endocarditis staphylococcal [Unknown]
